FAERS Safety Report 7227889-5 (Version None)
Quarter: 2011Q1

REPORT INFORMATION
  Report Type: 
  Country: None (occurrence: None)
  Receive Date: 20110114
  Receipt Date: 20110106
  Transmission Date: 20110831
  Serious: Yes (Other)
  Sender: FDA-Public Use
  Company Number: US-MERCK-0912USA00848

PATIENT
  Age: 65 Year
  Sex: Male
  Weight: 99 kg

DRUGS (6)
  1. FOSAMAX [Suspect]
     Dosage: WEEKLY
     Route: 048
     Dates: start: 20000401, end: 20001101
  2. BONIVA [Suspect]
     Route: 065
  3. FOLIC ACID [Concomitant]
     Indication: OSTEOPOROSIS
     Route: 048
  4. FOSAMAX [Suspect]
     Route: 048
     Dates: start: 20000401, end: 20011001
  5. FOSAMAX [Suspect]
     Indication: OSTEOPOROSIS
     Route: 048
     Dates: start: 19960801, end: 20000401
  6. ACTONEL [Suspect]
     Route: 065
     Dates: start: 20001101, end: 20071218

REACTIONS (36)
  - INFLAMMATORY BOWEL DISEASE [None]
  - PNEUMONIA [None]
  - FISTULA [None]
  - ORAL TORUS [None]
  - TOOTH FRACTURE [None]
  - RHEUMATOID ARTHRITIS [None]
  - BLOOD CHOLESTEROL INCREASED [None]
  - BLOOD CREATININE INCREASED [None]
  - VOMITING [None]
  - GINGIVAL PAIN [None]
  - PAIN [None]
  - FLUSHING [None]
  - OSTEONECROSIS OF JAW [None]
  - MYOCARDIAL INFARCTION [None]
  - TOOTH ABSCESS [None]
  - CHONDROCALCINOSIS PYROPHOSPHATE [None]
  - CHRONIC OBSTRUCTIVE PULMONARY DISEASE [None]
  - ABDOMINAL TENDERNESS [None]
  - DENTAL CARIES [None]
  - DIZZINESS [None]
  - EXOSTOSIS [None]
  - HYPERTENSION [None]
  - BURSA DISORDER [None]
  - INCORRECT DOSE ADMINISTERED [None]
  - MUSCULOSKELETAL DISCOMFORT [None]
  - HELICOBACTER INFECTION [None]
  - TRANSIENT ISCHAEMIC ATTACK [None]
  - CALCIUM DEFICIENCY [None]
  - CARDIOVASCULAR DISORDER [None]
  - NAUSEA [None]
  - HEADACHE [None]
  - PHARYNGEAL DISORDER [None]
  - ADVERSE DRUG REACTION [None]
  - ARTHROPATHY [None]
  - OSTEOPENIA [None]
  - EMPHYSEMA [None]
